FAERS Safety Report 7704325-3 (Version None)
Quarter: 2011Q3

REPORT INFORMATION
  Report Type: 
  Country: None (occurrence: None)
  Receive Date: 20110823
  Receipt Date: 20110812
  Transmission Date: 20111222
  Serious: Yes (Other)
  Sender: FDA-Public Use
  Company Number: PHHY2011FR70465

PATIENT
  Age: 20 Year
  Sex: Male

DRUGS (3)
  1. RITALIN [Suspect]
     Indication: PSYCHOMOTOR HYPERACTIVITY
     Dosage: 10 MG, BID
  2. LEPTICUR [Concomitant]
     Dosage: UNK UKN, UNK
  3. LOXAPINE HCL [Concomitant]
     Dosage: UNK UKN, UNK

REACTIONS (3)
  - SUICIDAL IDEATION [None]
  - DEPRESSIVE SYMPTOM [None]
  - MALAISE [None]
